FAERS Safety Report 5189896-6 (Version None)
Quarter: 2006Q4

REPORT INFORMATION
  Report Type: 
  Country: None (occurrence: None)
  Receive Date: 20061215
  Receipt Date: 20061205
  Transmission Date: 20070319
  Serious: Yes (Other)
  Sender: FDA-Public Use
  Company Number: 2006150894

PATIENT
  Age: 36 Year
  Sex: Female
  Weight: 74 kg

DRUGS (3)
  1. TRANEXAMIC ACID (IV) (TRANEXAMIC ACID) [Suspect]
     Indication: HAEMORRHAGIC DIATHESIS
     Dosage: 100 MG/ML; 1G, INTRAVENOUS
     Route: 042
     Dates: start: 20060829, end: 20060829
  2. MORPHINE [Concomitant]
  3. ZOFRAN [Concomitant]

REACTIONS (1)
  - DRUG HYPERSENSITIVITY [None]
